FAERS Safety Report 8472257-1 (Version None)
Quarter: 2012Q2

REPORT INFORMATION
  Report Type: 
  Country: None (occurrence: None)
  Receive Date: 20120622
  Receipt Date: 20120622
  Transmission Date: 20120825
  Serious: Yes (Hospitalization)
  Sender: FDA-Public Use
  Company Number: None

PATIENT
  Age: 41 Year
  Sex: Female
  Weight: 75.6 kg

DRUGS (1)
  1. AZATHIOPRINE [Suspect]
     Indication: CROHN'S DISEASE
     Dosage: 50 MG, DAILY, ORAL
     Route: 048
     Dates: start: 20120523, end: 20120607

REACTIONS (5)
  - ABDOMINAL PAIN [None]
  - PANCREATITIS ACUTE [None]
  - RECTAL HAEMORRHAGE [None]
  - MYALGIA [None]
  - NAUSEA [None]
